FAERS Safety Report 6082621-6 (Version None)
Quarter: 2009Q1

REPORT INFORMATION
  Report Type: 
  Country: None (occurrence: None)
  Receive Date: 20090218
  Receipt Date: 20090205
  Transmission Date: 20090719
  Serious: Yes (Death, Other)
  Sender: FDA-Public Use
  Company Number: US-PFIZER INC-2009165809

PATIENT
  Age: 55 Year
  Sex: Female

DRUGS (1)
  1. XANAX [Suspect]

REACTIONS (3)
  - COMPLETED SUICIDE [None]
  - DEPRESSION [None]
  - MYOCARDIAL INFARCTION [None]
